FAERS Safety Report 23835195 (Version 1)
Quarter: 2024Q2

REPORT INFORMATION
  Report Type: Report from Study
  Country: MX (occurrence: MX)
  Receive Date: 20240509
  Receipt Date: 20240509
  Transmission Date: 20240716
  Serious: Yes (Life-Threatening)
  Sender: FDA-Public Use
  Company Number: MX-002147023-NVSC2024MX097648

PATIENT
  Sex: Male
  Weight: 64 kg

DRUGS (1)
  1. GILENYA [Suspect]
     Active Substance: FINGOLIMOD HYDROCHLORIDE
     Indication: Multiple sclerosis
     Dosage: 0.5 MG, QD
     Route: 048
     Dates: start: 2021

REACTIONS (9)
  - White blood cell count decreased [Unknown]
  - Neutrophil count increased [Unknown]
  - Lymphocyte count decreased [Unknown]
  - Alanine aminotransferase increased [Unknown]
  - Gamma-glutamyltransferase increased [Unknown]
  - Monocyte count increased [Unknown]
  - Malaise [Unknown]
  - Blood lactate dehydrogenase decreased [Unknown]
  - Albumin globulin ratio increased [Unknown]
